FAERS Safety Report 17812286 (Version 3)
Quarter: 2020Q2

REPORT INFORMATION
  Report Type: Spontaneous
  Country: US (occurrence: US)
  Receive Date: 20200521
  Receipt Date: 20200603
  Transmission Date: 20200714
  Serious: No
  Sender: FDA-Public Use
  Company Number: US-TEVA-2020-US-1239000

PATIENT
  Sex: Female

DRUGS (2)
  1. LIDOCAINE PATCH ACTAVIS [Suspect]
     Active Substance: LIDOCAINE
     Indication: ARTHRALGIA
     Route: 065
  2. LIDOCAINE PATCH ACTAVIS [Suspect]
     Active Substance: LIDOCAINE
     Route: 065

REACTIONS (5)
  - Drug ineffective [Unknown]
  - Product substitution issue [Unknown]
  - Product adhesion issue [Unknown]
  - Skin discolouration [Unknown]
  - Peripheral swelling [Unknown]
